FAERS Safety Report 6768591-3 (Version None)
Quarter: 2010Q2

REPORT INFORMATION
  Report Type: 
  Country: None (occurrence: None)
  Receive Date: 20100614
  Receipt Date: 20100602
  Transmission Date: 20101027
  Serious: Yes (Death)
  Sender: FDA-Public Use
  Company Number: FR-PFIZER INC-2010066525

PATIENT
  Age: 77 Year
  Sex: Male

DRUGS (10)
  1. PREDNISONE [Suspect]
     Indication: PROSTATE CANCER
     Dosage: 10 MG, 2X/DAY
     Dates: start: 20100412
  2. BLINDED *NO SUBJECT DRUG [Suspect]
     Indication: PROSTATE CANCER
     Dosage: 37.5 MG, 1X/DAY
     Route: 048
     Dates: start: 20100412, end: 20100520
  3. BLINDED *PLACEBO [Suspect]
     Indication: PROSTATE CANCER
     Dosage: 37.5 MG, 1X/DAY
     Route: 048
     Dates: start: 20100412, end: 20100520
  4. SUNITINIB MALATE [Suspect]
     Indication: PROSTATE CANCER
     Dosage: 37.5 MG, 1X/DAY
     Route: 048
     Dates: start: 20100412, end: 20100520
  5. RAMIPRIL [Concomitant]
     Indication: BLOOD PRESSURE INCREASED
     Dosage: UNK
     Route: 048
  6. NICORANDIL [Concomitant]
     Indication: PROPHYLAXIS
     Dosage: UNK
     Route: 048
  7. ACETYLSALICYLIC ACID [Concomitant]
     Indication: PROPHYLAXIS
     Dosage: UNK
     Route: 048
  8. BISOPROLOL [Concomitant]
     Indication: PROPHYLAXIS
     Dosage: UNK
     Route: 048
  9. BECLOMETASONE [Concomitant]
     Indication: ASTHMA
     Dosage: UNK
     Route: 055
  10. LEUPRORELIN [Concomitant]
     Indication: PROSTATE CANCER
     Dosage: 40 MG EVERY 6 MONTHS
     Route: 058
     Dates: start: 20100303

REACTIONS (1)
  - GENERAL PHYSICAL HEALTH DETERIORATION [None]
